FAERS Safety Report 9305015 (Version 1)
Quarter: 2013Q2

REPORT INFORMATION
  Report Type: Spontaneous
  Country: BR (occurrence: BR)
  Receive Date: 20130523
  Receipt Date: 20130523
  Transmission Date: 20140414
  Serious: Yes (Death, Other)
  Sender: FDA-Public Use
  Company Number: BR-AMGEN-BRASP2013036067

PATIENT
  Age: 57 Year
  Sex: Female

DRUGS (1)
  1. ENBREL [Suspect]
     Indication: RHEUMATOID ARTHRITIS
     Dosage: 50 MG,1X/ WEEK
     Dates: start: 201111, end: 201209

REACTIONS (4)
  - Death [Fatal]
  - Myocardial infarction [Unknown]
  - Urinary tract infection [Unknown]
  - Anaemia [Unknown]
